FAERS Safety Report 10166746 (Version 1)
Quarter: 2014Q2

REPORT INFORMATION
  Report Type: Spontaneous
  Country: US (occurrence: None)
  Receive Date: 20140508
  Receipt Date: 20140508
  Transmission Date: 20141212
  Serious: Yes (Other)
  Sender: FDA-Public Use
  Company Number: ADE14-014

PATIENT
  Age: 4 Month
  Sex: Male
  Weight: 5.5 kg

DRUGS (7)
  1. HEPARIN SODIUM INJECTION [Suspect]
     Indication: FALLOT^S TETRALOGY
     Route: 042
     Dates: start: 20140421, end: 20140421
  2. SOLUMEDEROL [Concomitant]
  3. FENTANYL [Concomitant]
  4. AMICAR [Concomitant]
  5. ROCURONIUM [Concomitant]
  6. NORMAL SALINE [Concomitant]
  7. LACTATED RINGERS [Concomitant]

REACTIONS (1)
  - No therapeutic response [None]
